FAERS Safety Report 13852039 (Version 1)
Quarter: 2017Q3

REPORT INFORMATION
  Report Type: Spontaneous
  Country: US (occurrence: US)
  Receive Date: 20170809
  Receipt Date: 20170809
  Transmission Date: 20171127
  Serious: No
  Sender: FDA-Public Use
  Company Number: US-ASTRAZENECA-2017SE80555

PATIENT
  Sex: Female
  Weight: 151 kg

DRUGS (1)
  1. BYDUREON [Suspect]
     Active Substance: EXENATIDE
     Indication: BLOOD GLUCOSE INCREASED
     Route: 058
     Dates: start: 20170727

REACTIONS (4)
  - Injection site warmth [Unknown]
  - Injection site erythema [Unknown]
  - Blood glucose increased [Unknown]
  - Injection site pruritus [Unknown]
